FAERS Safety Report 5723517-6 (Version None)
Quarter: 2008Q2

REPORT INFORMATION
  Report Type: 
  Country: None (occurrence: None)
  Receive Date: 20080430
  Receipt Date: 20080423
  Transmission Date: 20081010
  Serious: Yes (Death)
  Sender: FDA-Public Use
  Company Number: DE-TEVA-170731ISR

PATIENT
  Age: 53 Year
  Sex: Male

DRUGS (4)
  1. CYCLOSPORINE [Suspect]
     Indication: HEART TRANSPLANT
  2. MYCOPHENOLATE MOFETIL [Suspect]
     Indication: HEART TRANSPLANT
  3. MELPHALAN [Suspect]
     Indication: HEART TRANSPLANT
  4. CORTICOSTEROIDS [Suspect]
     Indication: HEART TRANSPLANT

REACTIONS (1)
  - MALIGNANT MELANOMA [None]
